FAERS Safety Report 24593507 (Version 1)
Quarter: 2024Q4

REPORT INFORMATION
  Report Type: Spontaneous
  Country: FR (occurrence: FR)
  Receive Date: 20241108
  Receipt Date: 20241108
  Transmission Date: 20250115
  Serious: Yes (Other)
  Sender: SANDOZ
  Company Number: None

PATIENT
  Age: 12 Year
  Sex: Female
  Weight: 42 kg

DRUGS (6)
  1. MIDAZOLAM HYDROCHLORIDE [Interacting]
     Active Substance: MIDAZOLAM HYDROCHLORIDE
     Indication: Sedation
     Route: 065
  2. VORICONAZOLE [Interacting]
     Active Substance: VORICONAZOLE
     Dosage: 500 MG, 2X/DAY
     Route: 065
  3. VORICONAZOLE [Interacting]
     Active Substance: VORICONAZOLE
     Dosage: 200 MG, 2X/DAY
     Route: 065
  4. VORICONAZOLE [Interacting]
     Active Substance: VORICONAZOLE
     Indication: Disseminated trichosporonosis
     Dosage: 300 MG, 2X/DAY, (14 MG/KG/DAY)
     Route: 065
     Dates: start: 201709
  5. VORICONAZOLE [Interacting]
     Active Substance: VORICONAZOLE
     Dosage: 400 MG, 2X/DAY
     Route: 065
  6. VORICONAZOLE [Interacting]
     Active Substance: VORICONAZOLE
     Dosage: 440 MG, 2X/DAY
     Route: 065

REACTIONS (5)
  - Drug interaction [Unknown]
  - Hepatic cytolysis [Recovering/Resolving]
  - Cholestasis [Recovering/Resolving]
  - Overdose [Unknown]
  - Off label use [Unknown]
